FAERS Safety Report 22932994 (Version 3)
Quarter: 2023Q4

REPORT INFORMATION
  Report Type: Spontaneous
  Country: JP (occurrence: JP)
  Receive Date: 20230912
  Receipt Date: 20231009
  Transmission Date: 20240110
  Serious: Yes (Other)
  Sender: FDA-Public Use
  Company Number: JP-MSD-2308JPN003976J

PATIENT
  Age: 64 Year
  Sex: Male

DRUGS (3)
  1. LAGEVRIO [Suspect]
     Active Substance: MOLNUPIRAVIR
     Indication: COVID-19 treatment
     Dosage: 800 MILLIGRAM, BID
     Route: 048
     Dates: start: 20230817, end: 20230819
  2. TRANSAMIN [Concomitant]
     Active Substance: TRANEXAMIC ACID
     Dosage: UNK
     Route: 065
  3. OLMESARTAN MEDOXOMIL [Concomitant]
     Active Substance: OLMESARTAN MEDOXOMIL
     Indication: Hypertension
     Dosage: UNK
     Route: 065

REACTIONS (1)
  - Urticarial vasculitis [Recovering/Resolving]

NARRATIVE: CASE EVENT DATE: 20230819
